FAERS Safety Report 4406281-2 (Version None)
Quarter: 2004Q3

REPORT INFORMATION
  Report Type: 
  Country: None (occurrence: None)
  Receive Date: 20040723
  Receipt Date: 20030604
  Transmission Date: 20050211
  Serious: Yes (Life-Threatening, Hospitalization, Other)
  Sender: FDA-Public Use
  Company Number: US-GLAXOSMITHKLINE-A0411006A

PATIENT
  Age: 84 Year
  Sex: Female
  Weight: 60.9 kg

DRUGS (7)
  1. AVANDIA [Suspect]
     Dosage: 6MG UNKNOWN
     Route: 048
     Dates: start: 20010206, end: 20030422
  2. TAMOXIFEN [Concomitant]
     Indication: BREAST CANCER
     Dosage: 10MG PER DAY
     Route: 048
  3. VERAPAMIL [Concomitant]
     Indication: HYPERTENSION
     Dosage: 360MG PER DAY
     Route: 048
  4. ZESTRIL [Concomitant]
     Indication: HYPERTENSION
     Dosage: 20MG PER DAY
     Route: 048
     Dates: start: 20020201
  5. GLUCOPHAGE [Concomitant]
     Dosage: 2000MG AT NIGHT
     Route: 048
  6. ALPRAZOLAM [Concomitant]
     Indication: ANXIETY
     Dosage: .125U THREE TIMES PER DAY
     Route: 048
  7. HYDROCHLOROTHIAZIDE [Concomitant]
     Dosage: 25MG PER DAY
     Route: 048
     Dates: start: 20020201

REACTIONS (4)
  - CARDIAC FAILURE CONGESTIVE [None]
  - DYSPNOEA [None]
  - OEDEMA [None]
  - PULMONARY OEDEMA [None]
